FAERS Safety Report 6877111-4 (Version None)
Quarter: 2010Q3

REPORT INFORMATION
  Report Type: 
  Country: None (occurrence: None)
  Receive Date: 20100727
  Receipt Date: 20100721
  Transmission Date: 20110219
  Serious: Yes (Life-Threatening, Disabling)
  Sender: FDA-Public Use
  Company Number: US-MERCK-1006USA03618

PATIENT
  Age: 84 Year
  Sex: Female

DRUGS (9)
  1. COZAAR [Suspect]
     Indication: HYPERTENSION
     Route: 048
  2. COZAAR [Suspect]
     Route: 048
     Dates: start: 20100601, end: 20100601
  3. COZAAR [Suspect]
     Route: 048
     Dates: start: 20100613
  4. COZAAR [Suspect]
     Route: 048
     Dates: start: 20100628
  5. COZAAR [Suspect]
     Route: 048
     Dates: end: 20100615
  6. ADVAIR DISKUS 100/50 [Concomitant]
     Route: 065
  7. SINGULAIR [Concomitant]
     Route: 048
  8. DILTIAZEM HYDROCHLORIDE [Concomitant]
     Route: 065
  9. NASACORT [Concomitant]
     Route: 065

REACTIONS (10)
  - ASTHENIA [None]
  - ASTHMA [None]
  - BACK PAIN [None]
  - BALANCE DISORDER [None]
  - DISORIENTATION [None]
  - DIZZINESS [None]
  - OEDEMA PERIPHERAL [None]
  - PLEURAL EFFUSION [None]
  - POLYURIA [None]
  - SENSATION OF HEAVINESS [None]
